APPROVED DRUG PRODUCT: EXIDINE
Active Ingredient: CHLORHEXIDINE GLUCONATE
Strength: 2.5%
Dosage Form/Route: SOLUTION;TOPICAL
Application: N019421 | Product #001
Applicant: XTTRIUM LABORATORIES INC
Approved: Dec 17, 1985 | RLD: No | RS: No | Type: DISCN